FAERS Safety Report 4655331-7 (Version None)
Quarter: 2005Q2

REPORT INFORMATION
  Report Type: 
  Country: None (occurrence: None)
  Receive Date: 20050505
  Receipt Date: 20050418
  Transmission Date: 20051028
  Serious: Yes (Hospitalization)
  Sender: FDA-Public Use
  Company Number: USA050392957

PATIENT
  Age: 74 Year
  Sex: Female
  Weight: 70 kg

DRUGS (18)
  1. FORTEO [Suspect]
     Indication: OSTEOPOROSIS
     Dosage: 20 UG/1 DAY
     Dates: start: 20040901
  2. DILANTIN [Concomitant]
  3. PLAVIX [Concomitant]
  4. ASPIRIN (ACTYLSALICYLIC ACID) [Concomitant]
  5. PRILOSEC [Concomitant]
  6. DETROL LA [Concomitant]
  7. NORVASC [Concomitant]
  8. COREG [Concomitant]
  9. NAMENDA (MEMANTINE HYDROCHLORIDE) [Concomitant]
  10. ALTACE (RAMIPRIL DURA) [Concomitant]
  11. ARICEPT [Concomitant]
  12. OXYTROL (OXYBUTYNIN NICOBRAND) [Concomitant]
  13. VITAMIN E [Concomitant]
  14. CALCIUM GLUCONATE [Concomitant]
  15. POTASSIUM CHLORIDE [Concomitant]
  16. MULTIVITAMINS NOS (MULTIVITAMINS NOS) [Concomitant]
  17. VIT C TAB [Concomitant]
  18. VITAMIN B-12 [Concomitant]

REACTIONS (11)
  - BRONCHITIS [None]
  - BURNING SENSATION [None]
  - CYANOSIS [None]
  - DYSKINESIA [None]
  - INFLUENZA [None]
  - INJECTION SITE PAIN [None]
  - INJECTION SITE REACTION [None]
  - MEDICAL DEVICE COMPLICATION [None]
  - MUSCLE SPASMS [None]
  - PAIN IN EXTREMITY [None]
  - VIRAL INFECTION [None]
